FAERS Safety Report 12607742 (Version 2)
Quarter: 2016Q3

REPORT INFORMATION
  Report Type: Spontaneous
  Country: US (occurrence: US)
  Receive Date: 20160729
  Receipt Date: 20160831
  Transmission Date: 20161109
  Serious: No
  Sender: FDA-Public Use
  Company Number: US-009507513-1607USA012418

PATIENT

DRUGS (1)
  1. ZOCOR [Suspect]
     Active Substance: SIMVASTATIN
     Indication: TYPE IIA HYPERLIPIDAEMIA
     Dosage: UNK

REACTIONS (3)
  - Drug intolerance [Unknown]
  - Muscle disorder [Unknown]
  - Blood creatine phosphokinase increased [Unknown]
